FAERS Safety Report 21374580 (Version 1)
Quarter: 2022Q3

REPORT INFORMATION
  Report Type: Spontaneous
  Country: CH (occurrence: CH)
  Receive Date: 20220926
  Receipt Date: 20220926
  Transmission Date: 20221027
  Serious: Yes (Other)
  Sender: FDA-Public Use
  Company Number: CH-NOVOPROD-961600

PATIENT
  Sex: Male

DRUGS (3)
  1. SAXENDA [Suspect]
     Active Substance: LIRAGLUTIDE
     Indication: Obesity
     Dosage: 0.6 (UNITS NOT REPORTED)
     Dates: start: 202203
  2. SAXENDA [Suspect]
     Active Substance: LIRAGLUTIDE
     Dosage: 1.8 (UNITS NOT REPORTED)
  3. SAXENDA [Suspect]
     Active Substance: LIRAGLUTIDE
     Dosage: 1.2 (UNITS NOT REPORTED)

REACTIONS (4)
  - Loss of consciousness [Unknown]
  - Malaise [Unknown]
  - Balance disorder [Unknown]
  - Tremor [Unknown]
